FAERS Safety Report 9308805 (Version 3)
Quarter: 2013Q3

REPORT INFORMATION
  Report Type: Spontaneous
  Country: TW (occurrence: TW)
  Receive Date: 20130524
  Receipt Date: 20130820
  Transmission Date: 20140515
  Serious: Yes (Hospitalization)
  Sender: FDA-Public Use
  Company Number: PHHY2013TW050133

PATIENT
  Age: 2 Year
  Sex: Female

DRUGS (8)
  1. TETRACOSACTIDE [Suspect]
     Indication: INFANTILE SPASMS
     Dosage: 0.025 MG/KG, DAILY FOR TWO WEEKS
     Route: 030
  2. TETRACOSACTIDE [Suspect]
     Dosage: 0.025 MG/KG, TAPERED TO HALF FREQUENCY EVERY 2 WEEKS
     Route: 030
  3. TETRACOSACTIDE [Suspect]
     Dosage: 0.025 MG/KG, DAILY
     Route: 030
  4. TETRACOSACTIDE [Suspect]
     Dosage: 0.025 MG/KG, EVERY SECOND DAY OF WEEK
     Route: 030
  5. VIGABATRIN [Concomitant]
  6. LAMOTRIGINE [Concomitant]
  7. PHENOBARBITAL [Concomitant]
  8. OXCARBAZEPINE [Concomitant]

REACTIONS (12)
  - Pneumonia pneumococcal [Unknown]
  - Cough [Unknown]
  - Pyrexia [Recovered/Resolved]
  - Dyspnoea [Unknown]
  - Lung consolidation [Unknown]
  - C-reactive protein increased [Unknown]
  - Hyperaemia [Unknown]
  - Rhinorrhoea [Unknown]
  - Vaccination failure [Unknown]
  - Dysstasia [Unknown]
  - Speech disorder [Unknown]
  - Posture abnormal [Unknown]
